FAERS Safety Report 8499154-X (Version None)
Quarter: 2012Q2

REPORT INFORMATION
  Report Type: 
  Country: None (occurrence: None)
  Receive Date: 20120405
  Receipt Date: 20100707
  Transmission Date: 20120825
  Serious: Yes (Disabling)
  Sender: FDA-Public Use
  Company Number: PHHY2010US32366

PATIENT
  Age: 90 Year
  Sex: Female
  Weight: 136.8 kg

DRUGS (1)
  1. RECLAST [Suspect]
     Indication: OSTEOPOROSIS
     Dosage: INFUSION
     Dates: start: 20090619

REACTIONS (6)
  - PAIN [None]
  - NAUSEA [None]
  - ASTHENIA [None]
  - MALAISE [None]
  - HEADACHE [None]
  - HYPERTENSION [None]
